FAERS Safety Report 17337611 (Version 1)
Quarter: 2020Q1

REPORT INFORMATION
  Report Type: Spontaneous
  Country: US (occurrence: US)
  Receive Date: 20200129
  Receipt Date: 20200129
  Transmission Date: 20200409
  Serious: No
  Sender: FDA-Public Use
  Company Number: US-ASTRAZENECA-2020SE01296

PATIENT
  Sex: Male

DRUGS (2)
  1. FARXIGA [Suspect]
     Active Substance: DAPAGLIFLOZIN PROPANEDIOL
     Dosage: UNKNOWN
     Route: 048
  2. BYDUREON BCISE [Suspect]
     Active Substance: EXENATIDE
     Route: 058

REACTIONS (7)
  - Gingival injury [Unknown]
  - Chapped lips [Unknown]
  - Wrong technique in device usage process [Unknown]
  - Oral pain [Unknown]
  - Abdominal pain upper [Unknown]
  - Mouth injury [Unknown]
  - Pollakiuria [Unknown]
